FAERS Safety Report 8484496-4 (Version None)
Quarter: 2012Q3

REPORT INFORMATION
  Report Type: 
  Country: None (occurrence: None)
  Receive Date: 20120703
  Receipt Date: 20120626
  Transmission Date: 20120928
  Serious: Yes (Hospitalization)
  Sender: FDA-Public Use
  Company Number: US-JNJFOC-20120205317

PATIENT
  Sex: Female
  Weight: 67.3 kg

DRUGS (7)
  1. REMICADE [Suspect]
     Indication: IRRITABLE BOWEL SYNDROME
     Route: 042
  2. MULTI-VITAMINS [Concomitant]
  3. HUMIRA [Concomitant]
     Dates: start: 20110818
  4. ACETAMINOPHEN [Concomitant]
  5. MOTRIN [Concomitant]
  6. MESALAMINE [Concomitant]
     Route: 048
  7. NEXIUM [Concomitant]

REACTIONS (1)
  - COLITIS ULCERATIVE [None]
